FAERS Safety Report 7249181-5 (Version None)
Quarter: 2011Q1

REPORT INFORMATION
  Report Type: 
  Country: None (occurrence: None)
  Receive Date: 20110128
  Receipt Date: 20110118
  Transmission Date: 20110831
  Serious: Yes (Hospitalization)
  Sender: FDA-Public Use
  Company Number: GB-JNJFOC-20080401197

PATIENT
  Age: 31 Year
  Sex: Male

DRUGS (6)
  1. INFLIXIMAB [Suspect]
     Route: 042
  2. METHOTREXATE [Concomitant]
     Indication: RHEUMATOID ARTHRITIS
     Route: 065
  3. CYCLOSPORINE [Concomitant]
     Route: 065
  4. METHOTREXATE [Concomitant]
     Route: 065
  5. INFLIXIMAB [Suspect]
     Indication: RHEUMATOID ARTHRITIS
     Route: 042
  6. CYCLOSPORINE [Concomitant]
     Indication: RHEUMATOID ARTHRITIS
     Route: 065

REACTIONS (3)
  - ANTI-NEUTROPHIL CYTOPLASMIC ANTIBODY POSITIVE VASCULITIS [None]
  - GLOMERULONEPHRITIS RAPIDLY PROGRESSIVE [None]
  - KLEBSIELLA INFECTION [None]
